FAERS Safety Report 8556330-5 (Version None)
Quarter: 2012Q3

REPORT INFORMATION
  Report Type: 
  Country: None (occurrence: None)
  Receive Date: 20120801
  Receipt Date: 20120724
  Transmission Date: 20120928
  Serious: Yes (Other)
  Sender: FDA-Public Use
  Company Number: JP-009507513-1207JPN010993

PATIENT

DRUGS (10)
  1. REBETOL [Suspect]
     Route: 048
     Dates: start: 20101001, end: 20101014
  2. INTERFERON BETA NOS [Suspect]
     Indication: HEPATITIS C
     Route: 041
     Dates: start: 20100816, end: 20100818
  3. INTERFERON BETA NOS [Suspect]
     Route: 041
     Dates: start: 20100823, end: 20100906
  4. INTERFERON BETA NOS [Suspect]
     Route: 041
     Dates: start: 20100921, end: 20101012
  5. REBETOL [Suspect]
     Indication: HEPATITIS C
     Dosage: 400 MG IN THE MORNING, 200 MG IN THE EVENING
     Route: 048
     Dates: start: 20100816, end: 20100930
  6. INTERFERON BETA NOS [Suspect]
     Route: 041
     Dates: start: 20100819, end: 20100821
  7. REBETOL [Suspect]
     Route: 048
     Dates: start: 20101015
  8. INTERFERON BETA NOS [Suspect]
     Route: 041
     Dates: start: 20100907, end: 20100918
  9. LOXONIN [Concomitant]
     Indication: PROPHYLAXIS
     Dosage: THE DIVIDED DOSE FREQUENCY IS UNCERTAIN.
     Route: 048
     Dates: start: 20100816, end: 20101014
  10. PEG-INTRON [Suspect]
     Indication: HEPATITIS C
     Dosage: UNK UNK, QW
     Route: 058
     Dates: start: 20101015, end: 20110204

REACTIONS (7)
  - PLATELET COUNT DECREASED [None]
  - PROTEIN TOTAL DECREASED [None]
  - BLOOD ALBUMIN DECREASED [None]
  - NEUTROPHIL COUNT DECREASED [None]
  - RED BLOOD CELL COUNT DECREASED [None]
  - HAEMOGLOBIN DECREASED [None]
  - WHITE BLOOD CELL COUNT DECREASED [None]
